FAERS Safety Report 9470823 (Version 4)
Quarter: 2015Q1

REPORT INFORMATION
  Report Type: Spontaneous
  Country: US (occurrence: US)
  Receive Date: 20130822
  Receipt Date: 20150129
  Transmission Date: 20150721
  Serious: Yes (Hospitalization, Disabling, Other)
  Sender: FDA-Public Use
  Company Number: US-009507513-1308USA006646

PATIENT
  Sex: Female
  Weight: 82.86 kg

DRUGS (2)
  1. FOSAMAX [Suspect]
     Active Substance: ALENDRONATE SODIUM
     Indication: OSTEOPOROSIS
     Dosage: 70 MG, QW
     Route: 048
     Dates: start: 2001
  2. ALENDRONATE SODIUM. [Suspect]
     Active Substance: ALENDRONATE SODIUM
     Indication: OSTEOPOROSIS
     Dosage: 70 MG, QW
     Route: 048
     Dates: start: 2006, end: 20111105

REACTIONS (55)
  - Mental status changes [Recovered/Resolved]
  - Foot fracture [Recovering/Resolving]
  - Exostosis [Unknown]
  - Osteoarthritis [Unknown]
  - Muscle atrophy [Unknown]
  - Basal ganglia infarction [Unknown]
  - Seizure [Unknown]
  - Fracture nonunion [Unknown]
  - Cough [Unknown]
  - Cerebral small vessel ischaemic disease [Not Recovered/Not Resolved]
  - Stress urinary incontinence [Unknown]
  - Eye disorder [Unknown]
  - Aura [Unknown]
  - Chronic obstructive pulmonary disease [Unknown]
  - Haemorrhagic anaemia [Unknown]
  - Arthralgia [Not Recovered/Not Resolved]
  - Essential hypertension [Recovered/Resolved]
  - Low turnover osteopathy [Not Recovered/Not Resolved]
  - Spinal osteoarthritis [Unknown]
  - Vision blurred [Unknown]
  - Transient ischaemic attack [Unknown]
  - Asthma [Unknown]
  - Cognitive disorder [Unknown]
  - Tachypnoea [Unknown]
  - Femur fracture [Unknown]
  - Nasopharyngitis [Unknown]
  - Cough [Unknown]
  - Sensory disturbance [Unknown]
  - Bone disorder [Unknown]
  - Amnesia [Unknown]
  - Open reduction of fracture [Unknown]
  - Osteoarthritis [Unknown]
  - Osteoarthritis [Unknown]
  - Fall [Unknown]
  - Transient global amnesia [Unknown]
  - Contusion [Unknown]
  - Transient ischaemic attack [Unknown]
  - Wrist fracture [Unknown]
  - Balance disorder [Unknown]
  - Osteosclerosis [Unknown]
  - Spinal osteoarthritis [Unknown]
  - Asthenia [Unknown]
  - Fall [Unknown]
  - Cardiomegaly [Unknown]
  - Polyneuropathy [Unknown]
  - Osteoarthritis [Unknown]
  - Hypercholesterolaemia [Unknown]
  - Ulna fracture [Unknown]
  - Headache [Unknown]
  - Intramedullary rod insertion [Unknown]
  - Blood creatinine increased [Recovering/Resolving]
  - Inguinal hernia [Unknown]
  - Mental status changes [Unknown]
  - Migraine [Unknown]
  - Radius fracture [Unknown]

NARRATIVE: CASE EVENT DATE: 2003
